FAERS Safety Report 5240345-9 (Version None)
Quarter: 2007Q1

REPORT INFORMATION
  Report Type: 
  Country: None (occurrence: None)
  Receive Date: 20061208
  Receipt Date: 20050928
  Transmission Date: 20070707
  Serious: Yes (Other)
  Sender: FDA-Public Use
  Company Number: 2005UW14566

PATIENT
  Age: 89 Year
  Sex: Male
  Weight: 86.182 kg

DRUGS (5)
  1. CRESTOR [Suspect]
     Indication: CARDIAC DISORDER
     Dosage: 10 MG PO
     Route: 048
  2. DIGOXIN [Concomitant]
  3. COREG [Concomitant]
  4. LISINOPRIL [Concomitant]
  5. ASPIRIN [Concomitant]

REACTIONS (1)
  - HIGH DENSITY LIPOPROTEIN DECREASED [None]
